FAERS Safety Report 5310179-5 (Version None)
Quarter: 2007Q2

REPORT INFORMATION
  Report Type: 
  Country: None (occurrence: None)
  Receive Date: 20070423
  Receipt Date: 20070413
  Transmission Date: 20071010
  Serious: Yes (Other)
  Sender: FDA-Public Use
  Company Number: E2020-01007-SPO-JP

PATIENT
  Age: 87 Year
  Sex: Female
  Weight: 43 kg

DRUGS (9)
  1. ARICEPT [Suspect]
     Indication: DEMENTIA ALZHEIMER'S TYPE
     Dosage: 5 MG, 1 IN 1 D, ORAL
     Route: 048
     Dates: start: 20070203, end: 20070220
  2. DIPYRIDAMOLE [Concomitant]
  3. MEDEPOLIN (ALPRAZOLAM) [Concomitant]
  4. DIA MEDIN (THIAMINE DISULFIDE) [Concomitant]
  5. AZULENE [Concomitant]
  6. CALNURS (DILTIAZEM HYDROCHLORIDE) [Concomitant]
  7. DORAL [Concomitant]
  8. CLONAZEPAM [Concomitant]
  9. ZINC [Concomitant]

REACTIONS (11)
  - ALTERED STATE OF CONSCIOUSNESS [None]
  - ANGINA PECTORIS [None]
  - CEREBRAL INFARCTION [None]
  - DISSOCIATIVE DISORDER [None]
  - DYSKINESIA [None]
  - EXTRAPYRAMIDAL DISORDER [None]
  - GENERAL PHYSICAL HEALTH DETERIORATION [None]
  - HYPERLIPIDAEMIA [None]
  - MALAISE [None]
  - PALPITATIONS [None]
  - SYNCOPE [None]
